FAERS Safety Report 22035948 (Version 2)
Quarter: 2023Q2

REPORT INFORMATION
  Report Type: Spontaneous
  Country: DK (occurrence: DK)
  Receive Date: 20230224
  Receipt Date: 20230508
  Transmission Date: 20230721
  Serious: Yes (Other)
  Sender: FDA-Public Use
  Company Number: DK-NOVOPROD-1022460

PATIENT
  Age: 65 Year
  Sex: Female
  Weight: 95.5 kg

DRUGS (2)
  1. WEGOVY [Suspect]
     Active Substance: SEMAGLUTIDE
     Indication: Product used for unknown indication
     Dosage: 0.25 MG, QW
     Route: 058
     Dates: start: 20230107
  2. WEGOVY [Suspect]
     Active Substance: SEMAGLUTIDE
     Dosage: 0.25 MG, QW(RESTARTED)
     Route: 058
     Dates: start: 20230212

REACTIONS (4)
  - Upper limb fracture [Recovered/Resolved]
  - Fall [Recovered/Resolved]
  - Syncope [Recovered/Resolved]
  - Dizziness [Not Recovered/Not Resolved]

NARRATIVE: CASE EVENT DATE: 20230111
